FAERS Safety Report 7669831-9 (Version None)
Quarter: 2011Q3

REPORT INFORMATION
  Report Type: 
  Country: None (occurrence: None)
  Receive Date: 20110808
  Receipt Date: 20110727
  Transmission Date: 20111222
  Serious: Yes (Death)
  Sender: FDA-Public Use
  Company Number: ZA-NOVOPROD-332857

PATIENT

DRUGS (2)
  1. LANTUS [Concomitant]
     Dosage: 11 U, QD
  2. NOVORAPID FLEXPEN [Suspect]
     Indication: DIABETES MELLITUS
     Dosage: 12 U, QD

REACTIONS (1)
  - DEATH [None]
